FAERS Safety Report 5677744-7 (Version None)
Quarter: 2008Q1

REPORT INFORMATION
  Report Type: 
  Country: None (occurrence: None)
  Receive Date: 20080324
  Receipt Date: 20080128
  Transmission Date: 20080703
  Serious: No
  Sender: FDA-Public Use
  Company Number: US-ABBOTT-08P-163-0435521-00

PATIENT
  Sex: Female
  Weight: 34.958 kg

DRUGS (3)
  1. BIAXIN XL FILMTABS 500MG [Suspect]
     Indication: BRONCHITIS
     Route: 048
     Dates: start: 20080111, end: 20080125
  2. SINGULAIR [Concomitant]
     Indication: ASTHMA
     Route: 048
     Dates: start: 20050101
  3. PULMACORT INHALER [Concomitant]
     Indication: ASTHMA
     Route: 048
     Dates: start: 20050101

REACTIONS (2)
  - RASH PRURITIC [None]
  - URTICARIA [None]
